FAERS Safety Report 18895816 (Version 1)
Quarter: 2021Q1

REPORT INFORMATION
  Report Type: Spontaneous
  Country: BR (occurrence: BR)
  Receive Date: 20210215
  Receipt Date: 20210215
  Transmission Date: 20210420
  Serious: Yes (Hospitalization)
  Sender: FDA-Public Use
  Company Number: BR-PURDUE-USA-2021-0211289

PATIENT
  Age: 23 Year
  Sex: Male

DRUGS (2)
  1. RESTIVA [Suspect]
     Active Substance: BUPRENORPHINE
     Indication: HERNIA PAIN
     Dosage: 1 PATCH, WEEKLY (STRENGTH 5 MG)
     Route: 062
     Dates: start: 202101, end: 20210127
  2. FLIXOTIDE [Concomitant]
     Active Substance: FLUTICASONE PROPIONATE
     Indication: BRONCHITIS
     Dosage: UNK
     Route: 055

REACTIONS (8)
  - Cold sweat [Recovered/Resolved]
  - Nervousness [Recovered/Resolved]
  - Pallor [Recovered/Resolved]
  - Abdominal discomfort [Not Recovered/Not Resolved]
  - Somnolence [Recovered/Resolved]
  - Tremor [Recovered/Resolved]
  - Malaise [Recovered/Resolved]
  - Anxiety [Recovered/Resolved]

NARRATIVE: CASE EVENT DATE: 20210127
